FAERS Safety Report 6749663-6 (Version None)
Quarter: 2010Q2

REPORT INFORMATION
  Report Type: 
  Country: None (occurrence: None)
  Receive Date: 20100601
  Receipt Date: 20100526
  Transmission Date: 20101027
  Serious: Yes (Death)
  Sender: FDA-Public Use
  Company Number: B0657259A

PATIENT
  Sex: Male

DRUGS (13)
  1. AUGMENTIN '125' [Suspect]
     Dosage: 1G THREE TIMES PER DAY
     Route: 042
     Dates: start: 20090801, end: 20090803
  2. IBUPROFENE [Suspect]
     Dosage: 400MG THREE TIMES PER DAY
     Route: 048
     Dates: start: 20090605, end: 20090630
  3. LYRICA [Suspect]
     Dosage: 75MG FOUR TIMES PER DAY
     Route: 048
     Dates: start: 20090630, end: 20090728
  4. LAMALINE [Suspect]
     Route: 048
     Dates: start: 20090630, end: 20090728
  5. PARACETAMOL [Suspect]
     Dosage: 1G FOUR TIMES PER DAY
     Route: 048
     Dates: start: 20090625, end: 20090630
  6. CONTRAMAL [Suspect]
     Dosage: 2UNIT FOUR TIMES PER DAY
     Route: 048
     Dates: start: 20090625, end: 20090630
  7. OMEPRAZOLE [Suspect]
     Indication: DRUG USE FOR UNKNOWN INDICATION
     Dosage: 20MG PER DAY
     Route: 048
     Dates: start: 20090625, end: 20090630
  8. OFLOCET [Suspect]
     Dosage: 1UNIT TWICE PER DAY
     Route: 042
     Dates: start: 20090801, end: 20090803
  9. VOLTAREN [Concomitant]
     Dosage: 1UNIT PER DAY
     Route: 030
     Dates: start: 20090620, end: 20090623
  10. ACUPAN [Concomitant]
     Dosage: 1UNIT PER DAY
     Route: 030
     Dates: start: 20090620, end: 20090623
  11. FELODIPINE [Concomitant]
     Dosage: 1TAB PER DAY
     Route: 048
     Dates: start: 20050101, end: 20090803
  12. KARDEGIC [Concomitant]
     Indication: PERIPHERAL ARTERIAL OCCLUSIVE DISEASE
     Dosage: 75MG PER DAY
     Route: 048
     Dates: start: 20050101, end: 20090803
  13. CORTICOIDS [Concomitant]
     Route: 065
     Dates: start: 20090630, end: 20090725

REACTIONS (6)
  - COMA HEPATIC [None]
  - CYTOLYTIC HEPATITIS [None]
  - HEPATIC ENCEPHALOPATHY [None]
  - HEPATOMEGALY [None]
  - HYPERTHERMIA [None]
  - PROTHROMBIN LEVEL DECREASED [None]
